FAERS Safety Report 6343020-2 (Version None)
Quarter: 2009Q3

REPORT INFORMATION
  Report Type: 
  Country: None (occurrence: None)
  Receive Date: 20090908
  Receipt Date: 20090901
  Transmission Date: 20100115
  Serious: Yes (Other)
  Sender: FDA-Public Use
  Company Number: NO-BAYER-200930485GPV

PATIENT
  Age: 52 Year
  Sex: Female

DRUGS (6)
  1. ADALAT [Suspect]
     Indication: DRUG USE FOR UNKNOWN INDICATION
     Route: 048
  2. ATACAND [Suspect]
     Indication: DRUG USE FOR UNKNOWN INDICATION
     Route: 065
  3. CENTYL [Suspect]
     Indication: DRUG USE FOR UNKNOWN INDICATION
     Route: 065
  4. LEVOTHYROXINE SODIUM [Suspect]
     Indication: DRUG USE FOR UNKNOWN INDICATION
     Route: 065
  5. LITHIONIT [Suspect]
     Indication: DRUG USE FOR UNKNOWN INDICATION
     Route: 065
  6. TRIATEC [Suspect]
     Indication: DRUG USE FOR UNKNOWN INDICATION
     Route: 065

REACTIONS (17)
  - BREAST DISCOMFORT [None]
  - DIZZINESS [None]
  - DYSGEUSIA [None]
  - DYSPHAGIA [None]
  - DYSPNOEA [None]
  - FATIGUE [None]
  - HYPERACUSIS [None]
  - HYPOTHYROIDISM [None]
  - INSOMNIA [None]
  - MASTICATION DISORDER [None]
  - MOVEMENT DISORDER [None]
  - PHOTOPHOBIA [None]
  - POLYURIA [None]
  - THERAPEUTIC AGENT TOXICITY [None]
  - TONGUE BITING [None]
  - URINE FLOW DECREASED [None]
  - WEIGHT INCREASED [None]
